FAERS Safety Report 26135608 (Version 1)
Quarter: 2025Q4

REPORT INFORMATION
  Report Type: Spontaneous
  Country: US (occurrence: None)
  Receive Date: 20251208
  Receipt Date: 20251208
  Transmission Date: 20260117
  Serious: No
  Sender: FDA-CTU
  Company Number: None

PATIENT
  Age: 74 Year
  Sex: Female
  Weight: 90 kg

DRUGS (7)
  1. TRYPTYR [Suspect]
     Active Substance: ACOLTREMON
     Indication: Dry eye
     Dates: start: 20251001, end: 20251114
  2. FLUOXETINE [Concomitant]
     Active Substance: FLUOXETINE HYDROCHLORIDE
  3. ALLEGRA [Concomitant]
     Active Substance: FEXOFENADINE HYDROCHLORIDE
  4. ZYRTEC [Concomitant]
     Active Substance: CETIRIZINE HYDROCHLORIDE
  5. PEPCID [Concomitant]
     Active Substance: FAMOTIDINE
  6. TUMERIC CAPSULES [Concomitant]
  7. VITAMINS [Concomitant]
     Active Substance: VITAMINS

REACTIONS (7)
  - Brain fog [None]
  - Fatigue [None]
  - Somnolence [None]
  - Therapy cessation [None]
  - Arthralgia [None]
  - Taste disorder [None]
  - Product label issue [None]

NARRATIVE: CASE EVENT DATE: 20251101
